FAERS Safety Report 6422697-7 (Version None)
Quarter: 2009Q4

REPORT INFORMATION
  Report Type: 
  Country: None (occurrence: None)
  Receive Date: 20091102
  Receipt Date: 20091022
  Transmission Date: 20100525
  Serious: Yes (Hospitalization, Other)
  Sender: FDA-Public Use
  Company Number: JP-JNJFOC-20091008918

PATIENT
  Sex: Male

DRUGS (2)
  1. CRAVIT [Suspect]
     Indication: OPPORTUNISTIC INFECTION
     Dosage: TOTAL OF 111 TABLETS.
     Route: 065
     Dates: start: 20090701, end: 20090801
  2. CIPROXIN NOS [Suspect]
     Indication: PNEUMONIA
     Route: 065

REACTIONS (4)
  - HYPERTHERMIA [None]
  - PNEUMONIA [None]
  - RENAL FAILURE [None]
  - SEPSIS [None]
